FAERS Safety Report 9920455 (Version 1)
Quarter: 2014Q1

REPORT INFORMATION
  Report Type: Spontaneous
  Country: US (occurrence: US)
  Receive Date: 20140224
  Receipt Date: 20140224
  Transmission Date: 20141002
  Serious: No
  Sender: FDA-Public Use
  Company Number: US-009507513-1402USA010030

PATIENT
  Age: 73 Year
  Sex: Female
  Weight: 74.38 kg

DRUGS (1)
  1. MIRALAX [Suspect]
     Indication: COLONOSCOPY
     Dosage: UNK, UNKNOWN
     Route: 048
     Dates: start: 20140109, end: 20140110

REACTIONS (2)
  - Diarrhoea [Recovered/Resolved]
  - Off label use [Unknown]
